FAERS Safety Report 23563468 (Version 1)
Quarter: 2024Q1

REPORT INFORMATION
  Report Type: Report from Study
  Country: JP (occurrence: JP)
  Receive Date: 20240226
  Receipt Date: 20240226
  Transmission Date: 20240410
  Serious: Yes (Other)
  Sender: FDA-Public Use
  Company Number: JP-GLAXOSMITHKLINE-JP2019JPN161378

PATIENT

DRUGS (18)
  1. BELIMUMAB [Suspect]
     Active Substance: BELIMUMAB
     Indication: Systemic lupus erythematosus
     Dosage: 10 MG/KG, EVERY 2 WEEKS
     Route: 041
     Dates: start: 20180621, end: 20180719
  2. BELIMUMAB [Suspect]
     Active Substance: BELIMUMAB
     Dosage: 10 MG/KG, EVERY 4 WEEKS
     Route: 041
     Dates: start: 20180816, end: 20190704
  3. PREDONINE [Suspect]
     Active Substance: PREDNISOLONE
     Indication: Systemic lupus erythematosus
     Dosage: 20 MG, 1D
     Route: 048
     Dates: start: 20160908, end: 20180912
  4. PREDONINE [Suspect]
     Active Substance: PREDNISOLONE
     Dosage: 10 MG, 1D
     Route: 048
     Dates: start: 20180913
  5. PREDNISOLONE [Suspect]
     Active Substance: PREDNISOLONE
     Indication: Systemic lupus erythematosus
     Dosage: 8 MG, 1D
     Route: 048
     Dates: start: 20180913, end: 20181107
  6. PREDNISOLONE [Suspect]
     Active Substance: PREDNISOLONE
     Dosage: 6 MG, 1D
     Route: 048
     Dates: start: 20181108, end: 20181205
  7. PREDNISOLONE [Suspect]
     Active Substance: PREDNISOLONE
     Dosage: 4 MG, 1D
     Route: 048
     Dates: start: 20181206, end: 20190109
  8. PREDNISOLONE [Suspect]
     Active Substance: PREDNISOLONE
     Dosage: 2 MG, 1D
     Route: 048
     Dates: start: 20190110, end: 20190605
  9. PREDNISOLONE [Suspect]
     Active Substance: PREDNISOLONE
     Dosage: 1 MG, 1D
     Route: 048
     Dates: start: 20190606
  10. PROGRAF [Concomitant]
     Active Substance: TACROLIMUS
     Indication: Systemic lupus erythematosus
     Dosage: UNK
  11. CELLCEPT [Concomitant]
     Active Substance: MYCOPHENOLATE MOFETIL
     Indication: Systemic lupus erythematosus
     Dosage: UNK
  12. RABEPRAZOLE SODIUM [Concomitant]
     Active Substance: RABEPRAZOLE SODIUM
     Indication: Prophylaxis
     Dosage: UNK
  13. BONALON [Concomitant]
     Active Substance: ALENDRONATE SODIUM
     Dosage: UNK
  14. MIYA-BM [Concomitant]
     Active Substance: CLOSTRIDIUM BUTYRICUM SPORES STRAIN M-55
     Indication: Omental haemorrhage
     Dosage: UNK
  15. MAGNESIUM OXIDE [Concomitant]
     Active Substance: MAGNESIUM OXIDE
     Indication: Constipation
     Dosage: UNK
  16. LOXOPROFEN SODIUM [Concomitant]
     Active Substance: LOXOPROFEN SODIUM
     Indication: Headache
     Dosage: UNK, PRN
  17. LOXOPROFEN SODIUM [Concomitant]
     Active Substance: LOXOPROFEN SODIUM
     Indication: Back pain
     Dosage: UNK
     Dates: start: 201810
  18. LOXOPROFEN SODIUM [Concomitant]
     Active Substance: LOXOPROFEN SODIUM
     Indication: Spinal compression fracture
     Dosage: UNK
     Dates: start: 20181102, end: 20181112

REACTIONS (5)
  - Spinal compression fracture [Recovered/Resolved]
  - Back pain [Recovering/Resolving]
  - Osteoporosis [Unknown]
  - Condition aggravated [Unknown]
  - Dermatitis atopic [Recovering/Resolving]

NARRATIVE: CASE EVENT DATE: 20180917
